FAERS Safety Report 13737685 (Version 1)
Quarter: 2017Q3

REPORT INFORMATION
  Report Type: Spontaneous
  Country: US (occurrence: US)
  Receive Date: 20170710
  Receipt Date: 20170710
  Transmission Date: 20171127
  Serious: No
  Sender: FDA-Public Use
  Company Number: US-SAOL THERAPEUTICS-2016SAO01116

PATIENT
  Sex: Female

DRUGS (8)
  1. SIMVASTATIN. [Concomitant]
     Active Substance: SIMVASTATIN
     Dosage: 40 MG, UNK
  2. OXYCODONE-ACETOMENOPHINE [Concomitant]
     Dosage: 5.325 MG, UNK
  3. LOSARTAN 50 [Concomitant]
     Active Substance: LOSARTAN
     Dosage: 12.5 MG, 1X/DAY
  4. DIAZEPAM. [Concomitant]
     Active Substance: DIAZEPAM
     Dosage: 5 MG, UNK
  5. OXYBUTYNIN [Concomitant]
     Active Substance: OXYBUTYNIN
     Dosage: 2 TABLETS, 2X/DAY
  6. NUTROFURANTOIN [Concomitant]
     Dosage: 100 MG, UNK
  7. GABAPENTIN. [Concomitant]
     Active Substance: GABAPENTIN
     Dosage: 200 MG, 2X/DAY
  8. BACLOFEN. [Suspect]
     Active Substance: BACLOFEN

REACTIONS (1)
  - Chest discomfort [Unknown]
